FAERS Safety Report 14292045 (Version 5)
Quarter: 2018Q4

REPORT INFORMATION
  Report Type: Spontaneous
  Country: US (occurrence: US)
  Receive Date: 20171215
  Receipt Date: 20181114
  Transmission Date: 20190204
  Serious: Yes (Hospitalization, Other)
  Sender: FDA-Public Use
  Company Number: US-ASTRAZENECA-2017SF27072

PATIENT
  Age: 41 Year
  Sex: Female
  Weight: 90.3 kg

DRUGS (45)
  1. PRILOSEC OTC [Suspect]
     Active Substance: OMEPRAZOLE MAGNESIUM
     Indication: GASTROOESOPHAGEAL REFLUX DISEASE
     Route: 048
     Dates: start: 2006, end: 2012
  2. PREVACID [Suspect]
     Active Substance: LANSOPRAZOLE
     Route: 065
  3. PEPCID [Concomitant]
     Active Substance: FAMOTIDINE
  4. PREMARIN [Concomitant]
     Active Substance: ESTROGENS, CONJUGATED
  5. ALTACE [Concomitant]
     Active Substance: RAMIPRIL
  6. LYRICA [Concomitant]
     Active Substance: PREGABALIN
  7. MAGNESIUM OXIDE. [Concomitant]
     Active Substance: MAGNESIUM OXIDE
  8. OXYCODONE AND ACETAMINOPHEN [Concomitant]
     Active Substance: ACETAMINOPHEN\OXYCODONE HYDROCHLORIDE
  9. LOSARTAN. [Concomitant]
     Active Substance: LOSARTAN
     Indication: BLOOD PRESSURE MEASUREMENT
     Dates: start: 2007, end: 2016
  10. HYDROCODONE/ APAP [Concomitant]
     Active Substance: ACETAMINOPHEN\HYDROCODONE
     Indication: PAIN
     Dates: start: 2005, end: 2015
  11. NEXIUM [Suspect]
     Active Substance: ESOMEPRAZOLE MAGNESIUM
     Indication: GASTROOESOPHAGEAL REFLUX DISEASE
     Route: 048
     Dates: start: 2003, end: 2016
  12. PRILOSEC [Suspect]
     Active Substance: OMEPRAZOLE MAGNESIUM
     Indication: GASTROOESOPHAGEAL REFLUX DISEASE
     Dosage: GENERIC
     Route: 048
     Dates: start: 2003, end: 2005
  13. ALPRAZOLAM. [Concomitant]
     Active Substance: ALPRAZOLAM
  14. NEURONTIN [Concomitant]
     Active Substance: GABAPENTIN
  15. AMOXICILLIN. [Concomitant]
     Active Substance: AMOXICILLIN
  16. LEVOTHYROXINE. [Concomitant]
     Active Substance: LEVOTHYROXINE
  17. DIAZEPAM. [Concomitant]
     Active Substance: DIAZEPAM
  18. PRILOSEC [Suspect]
     Active Substance: OMEPRAZOLE MAGNESIUM
     Indication: GASTROOESOPHAGEAL REFLUX DISEASE
     Route: 048
     Dates: start: 2003, end: 2016
  19. MAGNESIUM [Concomitant]
     Active Substance: MAGNESIUM
     Indication: ELECTROLYTE IMBALANCE
     Dates: start: 2010, end: 2016
  20. SKELAXIN [Concomitant]
     Active Substance: METAXALONE
  21. POTASSIUM [Concomitant]
     Active Substance: POTASSIUM
     Indication: ELECTROLYTE IMBALANCE
     Dates: start: 2010, end: 2016
  22. LAMISIL [Concomitant]
     Active Substance: TERBINAFINE HYDROCHLORIDE
  23. VITAMIN D [Concomitant]
     Active Substance: CHOLECALCIFEROL
     Dates: start: 2009
  24. BENZONATATE. [Concomitant]
     Active Substance: BENZONATATE
  25. RANITIDINE. [Concomitant]
     Active Substance: RANITIDINE
  26. MELOXICAM. [Concomitant]
     Active Substance: MELOXICAM
  27. CEFDINIR. [Concomitant]
     Active Substance: CEFDINIR
  28. PRILOSEC [Suspect]
     Active Substance: OMEPRAZOLE MAGNESIUM
     Indication: GASTROOESOPHAGEAL REFLUX DISEASE
     Dosage: GENERIC
     Route: 048
     Dates: start: 2005, end: 2016
  29. CALCIUM [Concomitant]
     Active Substance: CALCIUM
     Indication: ELECTROLYTE IMBALANCE
     Dates: start: 2010, end: 2016
  30. ENALAPRIL+HCTZ [Concomitant]
     Active Substance: ENALAPRIL\HYDROCHLOROTHIAZIDE
  31. CARISOPRODOL. [Concomitant]
     Active Substance: CARISOPRODOL
  32. HYDROCHLOROTHIAZIDE. [Concomitant]
     Active Substance: HYDROCHLOROTHIAZIDE
  33. AMITRIPTYLINE HYDROCHLORIDE. [Concomitant]
     Active Substance: AMITRIPTYLINE HYDROCHLORIDE
  34. PROAIR HFA [Concomitant]
     Active Substance: ALBUTEROL SULFATE
  35. CEPHALEXIN. [Concomitant]
     Active Substance: CEPHALEXIN
  36. CIPROFLOXACIN HYDROCHLORIDE. [Concomitant]
     Active Substance: CIPROFLOXACIN HYDROCHLORIDE
  37. METHYLPREDNISOLONE. [Concomitant]
     Active Substance: METHYLPREDNISOLONE
  38. CYCLOBENZAPRINE. [Concomitant]
     Active Substance: CYCLOBENZAPRINE
  39. NEXIUM [Suspect]
     Active Substance: ESOMEPRAZOLE MAGNESIUM
     Indication: GASTROOESOPHAGEAL REFLUX DISEASE
     Route: 048
     Dates: start: 2005
  40. TRIAMTERENE+HCTZ [Concomitant]
  41. ATENOLOL. [Concomitant]
     Active Substance: ATENOLOL
  42. CYANOCOBALAMIN. [Concomitant]
     Active Substance: CYANOCOBALAMIN
  43. NAPROXEN. [Concomitant]
     Active Substance: NAPROXEN
  44. AZITHROMYCIN ANHYDROUS. [Concomitant]
     Active Substance: AZITHROMYCIN ANHYDROUS
     Dates: start: 2007, end: 2016
  45. KETOROLAC [Concomitant]
     Active Substance: KETOROLAC\KETOROLAC TROMETHAMINE
     Indication: PAIN
     Dates: start: 2007, end: 2016

REACTIONS (3)
  - Chronic kidney disease [Not Recovered/Not Resolved]
  - Renal failure [Unknown]
  - Acute kidney injury [Recovered/Resolved]

NARRATIVE: CASE EVENT DATE: 2008
